FAERS Safety Report 13301004 (Version 1)
Quarter: 2017Q1

REPORT INFORMATION
  Report Type: Other
  Country: CA (occurrence: CA)
  Receive Date: 20170307
  Receipt Date: 20170307
  Transmission Date: 20170428
  Serious: Yes (Death, Other)
  Sender: FDA-Public Use
  Company Number: CA-APOTEX-2017AP007401

PATIENT
  Age: 44 Year
  Sex: Female

DRUGS (4)
  1. APO-MYCOPHENOLATE [Suspect]
     Active Substance: MYCOPHENOLIC ACID
     Indication: CENTRAL NERVOUS SYSTEM LYMPHOMA
  2. APO-PREDNISONE [Suspect]
     Active Substance: PREDNISONE
     Indication: IMMUNOSUPPRESSANT DRUG THERAPY
     Route: 065
  3. APO-PREDNISONE [Suspect]
     Active Substance: PREDNISONE
     Indication: CENTRAL NERVOUS SYSTEM LYMPHOMA
  4. APO-MYCOPHENOLATE [Suspect]
     Active Substance: MYCOPHENOLIC ACID
     Indication: IMMUNOSUPPRESSANT DRUG THERAPY
     Dosage: UNK
     Route: 065

REACTIONS (12)
  - Dysmetria [Fatal]
  - Condition aggravated [Fatal]
  - Seizure [Fatal]
  - Product use issue [Fatal]
  - Central nervous system lesion [Fatal]
  - Depressed level of consciousness [Fatal]
  - Gait disturbance [Fatal]
  - Central nervous system lymphoma [Fatal]
  - Coma [Fatal]
  - Hydrocephalus [Fatal]
  - Intraventricular haemorrhage [Fatal]
  - Upper motor neurone lesion [Fatal]
